FAERS Safety Report 15685842 (Version 3)
Quarter: 2019Q1

REPORT INFORMATION
  Report Type: Spontaneous
  Country: US (occurrence: US)
  Receive Date: 20181204
  Receipt Date: 20190329
  Transmission Date: 20190417
  Serious: Yes (Other)
  Sender: FDA-Public Use
  Company Number: US-SA-2018SA326173

PATIENT
  Age: 57 Year
  Sex: Female
  Weight: 103 kg

DRUGS (11)
  1. AROMASIN [Concomitant]
     Active Substance: EXEMESTANE
  2. NEOSAR [Concomitant]
     Active Substance: CYCLOPHOSPHAMIDE
  3. TAXOTERE [Suspect]
     Active Substance: DOCETAXEL
     Indication: BREAST CANCER FEMALE
     Dosage: UNK
     Route: 042
     Dates: start: 20071002, end: 20071002
  4. FEMARA [Concomitant]
     Active Substance: LETROZOLE
  5. CYMBALTA [Concomitant]
     Active Substance: DULOXETINE HYDROCHLORIDE
  6. FISH OIL [Concomitant]
     Active Substance: FISH OIL
  7. NAPROXEN. [Concomitant]
     Active Substance: NAPROXEN
  8. LYRICA [Concomitant]
     Active Substance: PREGABALIN
  9. LORAZEPAM. [Concomitant]
     Active Substance: LORAZEPAM
  10. TAXOTERE [Suspect]
     Active Substance: DOCETAXEL
     Dosage: UNK UNK, UNK
     Route: 042
     Dates: start: 20071211, end: 20071211
  11. OMEPRAZOLE. [Concomitant]
     Active Substance: OMEPRAZOLE

REACTIONS (3)
  - Anxiety [Unknown]
  - Emotional distress [Unknown]
  - Alopecia [Not Recovered/Not Resolved]

NARRATIVE: CASE EVENT DATE: 200806
